FAERS Safety Report 24114705 (Version 1)
Quarter: 2024Q3

REPORT INFORMATION
  Report Type: Spontaneous
  Country: IT (occurrence: IT)
  Receive Date: 20240721
  Receipt Date: 20240721
  Transmission Date: 20241017
  Serious: Yes (Other)
  Sender: MYLAN
  Company Number: IT-MYLANLABS-2024M1066562

PATIENT
  Age: 78 Year
  Sex: Male

DRUGS (10)
  1. TOPIRAMATE [Suspect]
     Active Substance: TOPIRAMATE
     Indication: Ballismus
     Dosage: 12.5 MILLIGRAM, QD
     Route: 065
  2. TOPIRAMATE [Suspect]
     Active Substance: TOPIRAMATE
     Indication: Chorea
     Dosage: 37.5 MILLIGRAM, QD; HERE DOSE WAS TITRATED UPTO 37.5MG/DAY
     Route: 065
  3. QUETIAPINE [Suspect]
     Active Substance: QUETIAPINE
     Indication: Ballismus
     Dosage: UNK
     Route: 065
  4. QUETIAPINE [Suspect]
     Active Substance: QUETIAPINE
     Indication: Chorea
  5. TETRABENAZINE [Suspect]
     Active Substance: TETRABENAZINE
     Indication: Ballismus
     Dosage: UNK
     Route: 065
  6. TETRABENAZINE [Suspect]
     Active Substance: TETRABENAZINE
     Indication: Chorea
  7. CLONAZEPAM [Suspect]
     Active Substance: CLONAZEPAM
     Indication: Ballismus
     Dosage: UNK
     Route: 065
  8. CLONAZEPAM [Suspect]
     Active Substance: CLONAZEPAM
     Indication: Chorea
  9. LEVODOPA [Concomitant]
     Active Substance: LEVODOPA
     Indication: Vascular parkinsonism
     Dosage: 400 MILLIGRAM, QD
     Route: 065
  10. LEVODOPA [Concomitant]
     Active Substance: LEVODOPA
     Dosage: 150 MILLIGRAM, QD; HERE DOSE WAS REDUCED TO 150MG/DAY
     Route: 065

REACTIONS (2)
  - Drug ineffective for unapproved indication [Unknown]
  - Off label use [Unknown]
